FAERS Safety Report 5782677-1 (Version None)
Quarter: 2008Q2

REPORT INFORMATION
  Report Type: 
  Country: None (occurrence: None)
  Receive Date: 20080624
  Receipt Date: 20080616
  Transmission Date: 20081010
  Serious: Yes (Other)
  Sender: FDA-Public Use
  Company Number: PHNR2006AU00714

PATIENT
  Sex: Male

DRUGS (6)
  1. CLOZARIL [Suspect]
     Indication: SCHIZOPHRENIA
     Dosage: 12.5-300 MG DAILY
     Dates: start: 20060403
  2. CLOZARIL [Suspect]
     Dosage: 500 MG
     Dates: start: 20060501
  3. CLOZARIL [Suspect]
     Dosage: 450 MG DAILY
     Route: 048
  4. CLOZARIL [Suspect]
     Dosage: 350 MG DAILY
     Route: 048
  5. OLANZAPINE [Concomitant]
  6. VALPROATE SODIUM [Concomitant]

REACTIONS (5)
  - ALANINE AMINOTRANSFERASE INCREASED [None]
  - ASPARTATE AMINOTRANSFERASE INCREASED [None]
  - GAMMA-GLUTAMYLTRANSFERASE INCREASED [None]
  - PROTEIN TOTAL INCREASED [None]
  - PYREXIA [None]
